FAERS Safety Report 10095551 (Version 2)
Quarter: 2014Q2

REPORT INFORMATION
  Report Type: Spontaneous
  Country: JP (occurrence: JP)
  Receive Date: 20140422
  Receipt Date: 20140625
  Transmission Date: 20141212
  Serious: Yes (Hospitalization)
  Sender: FDA-Public Use
  Company Number: JP-B.I. PHARMACEUTICALS,INC./RIDGEFIELD-2014-BI-17993YA

PATIENT
  Age: 83 Year
  Sex: Male

DRUGS (4)
  1. MIRABEGRON [Suspect]
     Indication: HYPERTONIC BLADDER
     Dosage: 50 MG
     Route: 048
     Dates: start: 20130212
  2. BETANIS [Suspect]
     Route: 048
     Dates: start: 2014
  3. AVOLVE [Concomitant]
     Route: 065
  4. HARNAL [Concomitant]
     Dosage: FORMULATION: ORODISPERSIBLE TABLET
     Route: 065

REACTIONS (2)
  - Osteoporosis [Not Recovered/Not Resolved]
  - Compression fracture [Not Recovered/Not Resolved]
